FAERS Safety Report 24032121 (Version 1)
Quarter: 2024Q2

REPORT INFORMATION
  Report Type: Spontaneous
  Country: US (occurrence: US)
  Receive Date: 20240630
  Receipt Date: 20240630
  Transmission Date: 20240716
  Serious: No
  Sender: FDA-Public Use
  Company Number: US-HETERO-HET2024US01760

PATIENT
  Sex: Male

DRUGS (1)
  1. PIRFENIDONE [Suspect]
     Active Substance: PIRFENIDONE
     Indication: Product used for unknown indication
     Dosage: 267 MILLIGRAM
     Route: 065

REACTIONS (4)
  - Nausea [Unknown]
  - Fatigue [Unknown]
  - Product formulation issue [Unknown]
  - Drug ineffective [Unknown]
